FAERS Safety Report 10213388 (Version 3)
Quarter: 2014Q3

REPORT INFORMATION
  Report Type: Report from Study
  Country: BR (occurrence: BR)
  Receive Date: 20140603
  Receipt Date: 20140724
  Transmission Date: 20150326
  Serious: Yes (Hospitalization, Disabling, Other)
  Sender: FDA-Public Use
  Company Number: BR-ROCHE-1402558

PATIENT
  Age: 62 Year
  Sex: Female
  Weight: 57 kg

DRUGS (7)
  1. ACTEMRA [Suspect]
     Active Substance: TOCILIZUMAB
     Indication: RHEUMATOID ARTHRITIS
     Dosage: THE MOST RECENT INFUSION WAS ON 09/APR/2014 AND PREVIOUS INFUSIONS WAS GIVEN ON 12/MAR/2014.
     Route: 042
     Dates: start: 20140212
  2. ATENOLOL. [Concomitant]
     Active Substance: ATENOLOL
  3. CLOPIDOGREL [Concomitant]
     Active Substance: CLOPIDOGREL BISULFATE
  4. ARAVA [Concomitant]
     Active Substance: LEFLUNOMIDE
  5. ASPIRIN. [Concomitant]
     Active Substance: ASPIRIN
  6. CEBRALAT [Concomitant]
     Active Substance: CILOSTAZOL
  7. PRESS PLUS [Concomitant]

REACTIONS (7)
  - Pain [Unknown]
  - Ill-defined disorder [Unknown]
  - Drug dose omission [Unknown]
  - Cardiac disorder [Unknown]
  - Hypertension [Unknown]
  - Weight decreased [Recovering/Resolving]
  - Arterial disorder [Not Recovered/Not Resolved]

NARRATIVE: CASE EVENT DATE: 201405
